FAERS Safety Report 6468976-9 (Version None)
Quarter: 2009Q4

REPORT INFORMATION
  Report Type: 
  Country: None (occurrence: None)
  Receive Date: 20091203
  Receipt Date: 20080604
  Transmission Date: 20100525
  Serious: Yes (Other)
  Sender: FDA-Public Use
  Company Number: US-ELI_LILLY_AND_COMPANY-USA0507103493

PATIENT
  Sex: Female

DRUGS (4)
  1. EVISTA [Suspect]
     Indication: OSTEOPOROSIS
     Dosage: 60 MG, DAILY (1/D)
     Dates: start: 20020101
  2. FOSAMAX [Concomitant]
     Indication: OSTEOPOROSIS
     Dosage: UNK, UNKNOWN
  3. MIACALCIN [Concomitant]
     Indication: OSTEOPOROSIS
     Dosage: UNK, UNKNOWN
  4. LEVOXYL [Concomitant]
     Indication: HYPOTHYROIDISM
     Dosage: UNK, UNKNOWN

REACTIONS (4)
  - CATARACT [None]
  - RETINAL VEIN THROMBOSIS [None]
  - VISUAL FIELD DEFECT [None]
  - VISUAL IMPAIRMENT [None]
